FAERS Safety Report 5858701-4 (Version None)
Quarter: 2008Q3

REPORT INFORMATION
  Report Type: 
  Country: None (occurrence: None)
  Receive Date: 20080826
  Receipt Date: 20080822
  Transmission Date: 20090109
  Serious: Yes (Hospitalization)
  Sender: FDA-Public Use
  Company Number: US-BOEHRINGER INGELHEIM GMBH, GERMANY-2008-DE-04966GD

PATIENT

DRUGS (6)
  1. IPRATROPIUM BROMIDE [Suspect]
     Indication: STATUS ASTHMATICUS
     Dosage: 250 MCG EVERY 6 H IF BODY WEIGHT {/=10 KG, 500 MCG EVERY 6 H IF BODY WEIGHT }/=11 KG
     Route: 055
  2. ALBUTEROL [Suspect]
     Indication: STATUS ASTHMATICUS
     Route: 055
  3. METHYLPREDNISOLONE [Suspect]
     Indication: STATUS ASTHMATICUS
     Dosage: LOADING DOSE OF 2 MG/KG, FOLLOWED BY 1 MG/KG EVERY 6 H
     Route: 051
  4. TERBUTALINE SULFATE [Suspect]
     Indication: STATUS ASTHMATICUS
     Dosage: 1 MG/ML, LOADING DOSE OF 10 MCG/KG PER MIN GIVEN OVER 10 TO 20 MIN, FOLLOWED BY CONTINUOUS INFUSION
     Route: 042
  5. SODIUM CHLORIDE [Concomitant]
     Indication: STATUS ASTHMATICUS
     Dosage: BOLUS OF 20 ML/KG
  6. FLUIDS [Concomitant]
     Indication: STATUS ASTHMATICUS
     Route: 042

REACTIONS (2)
  - DRUG INEFFECTIVE [None]
  - SUPRAVENTRICULAR EXTRASYSTOLES [None]
